FAERS Safety Report 10156717 (Version 2)
Quarter: 2014Q2

REPORT INFORMATION
  Report Type: Spontaneous
  Country: FR (occurrence: None)
  Receive Date: 20140505
  Receipt Date: 20140530
  Transmission Date: 20141212
  Serious: Yes (Life-Threatening)
  Sender: FDA-Public Use
  Company Number: FK201401566

PATIENT
  Age: 36 Year
  Sex: Female

DRUGS (2)
  1. PROPOFOL FRESENIUS [Suspect]
     Indication: INDUCTION OF ANAESTHESIA
     Route: 042
     Dates: start: 20140326, end: 20140326
  2. CELOCURINE (SUXAMETHONIUM CHLORIDE) (SUXAMETHONIUM CHLORIDE) [Suspect]
     Indication: PRODUCT USED FOR UNKNOWN INDICATION

REACTIONS (4)
  - Rash [None]
  - Hypertension [None]
  - Tachycardia [None]
  - Anaphylactic shock [None]
